FAERS Safety Report 16935599 (Version 3)
Quarter: 2020Q1

REPORT INFORMATION
  Report Type: Spontaneous
  Country: US (occurrence: US)
  Receive Date: 20191018
  Receipt Date: 20200313
  Transmission Date: 20200409
  Serious: No
  Sender: FDA-Public Use
  Company Number: US-SA-2019SA287067

PATIENT
  Age: 76 Year
  Sex: Male

DRUGS (1)
  1. DUPIXENT [Suspect]
     Active Substance: DUPILUMAB
     Indication: DERMATITIS ATOPIC
     Dosage: 300 MG, QOW
     Route: 058
     Dates: start: 201908, end: 202002

REACTIONS (6)
  - Rash macular [Recovered/Resolved]
  - Insomnia [Unknown]
  - Rash macular [Unknown]
  - Erythema [Unknown]
  - Pruritus [Unknown]
  - Foreign body sensation in eyes [Unknown]
